FAERS Safety Report 6837059-8 (Version None)
Quarter: 2010Q3

REPORT INFORMATION
  Report Type: 
  Country: None (occurrence: None)
  Receive Date: 20100713
  Receipt Date: 20070503
  Transmission Date: 20110219
  Serious: No
  Sender: FDA-Public Use
  Company Number: US-PFIZER INC-2007037070

PATIENT
  Sex: Female
  Weight: 56.818 kg

DRUGS (6)
  1. CHANTIX [Suspect]
     Indication: SMOKING CESSATION THERAPY
     Dates: start: 20070401
  2. ADVIL LIQUI-GELS [Concomitant]
  3. TRAMADOL [Concomitant]
  4. LYRICA [Concomitant]
  5. BUSPAR [Concomitant]
  6. LEXAPRO [Concomitant]

REACTIONS (1)
  - NAUSEA [None]
